FAERS Safety Report 26078115 (Version 1)
Quarter: 2025Q4

REPORT INFORMATION
  Report Type: Spontaneous
  Country: US (occurrence: US)
  Receive Date: 20251122
  Receipt Date: 20251122
  Transmission Date: 20260118
  Serious: No
  Sender: SANOFI AVENTIS
  Company Number: US-SA-2025SA347070

PATIENT
  Age: 41 Year
  Sex: Female
  Weight: 54.43 kg

DRUGS (4)
  1. CABLIVI [Suspect]
     Active Substance: CAPLACIZUMAB-YHDP
     Indication: Thrombotic microangiopathy
     Dosage: 11 MG 1 DOSE EVERY 1 DAY
     Route: 058
     Dates: start: 20251024
  2. CABLIVI [Suspect]
     Active Substance: CAPLACIZUMAB-YHDP
     Indication: Thrombotic microangiopathy
     Dosage: 11 MG 1 DOSE EVERY 1 DAY
     Route: 058
     Dates: start: 20251024
  3. CABLIVI [Suspect]
     Active Substance: CAPLACIZUMAB-YHDP
     Indication: Thrombotic microangiopathy
     Dosage: 11 MG 1 DOSE EVERY 1 DAY
     Route: 058
     Dates: start: 20251024
  4. CABLIVI [Suspect]
     Active Substance: CAPLACIZUMAB-YHDP
     Indication: Thrombotic microangiopathy
     Dosage: 11 MG 1 DOSE EVERY 1 DAY
     Route: 058
     Dates: start: 20251024

REACTIONS (2)
  - ADAMTS13 activity decreased [Unknown]
  - Product use in unapproved indication [Unknown]

NARRATIVE: CASE EVENT DATE: 20251024
